FAERS Safety Report 7754364-1 (Version None)
Quarter: 2011Q3

REPORT INFORMATION
  Report Type: 
  Country: None (occurrence: None)
  Receive Date: 20110915
  Receipt Date: 20110909
  Transmission Date: 20111222
  Serious: Yes (Other)
  Sender: FDA-Public Use
  Company Number: US-PFIZER INC-0010380501PHAMED

PATIENT
  Age: 36 Year
  Sex: Female

DRUGS (5)
  1. MEDROL [Suspect]
     Indication: ASTHMA
     Dosage: UNK
     Route: 048
     Dates: start: 19961019, end: 19961021
  2. ESTROGENS [Concomitant]
  3. ZITHROMAX [Concomitant]
     Indication: VIRAL INFECTION
     Dosage: UNK
     Route: 048
     Dates: start: 19961010, end: 19961014
  4. PEPCID [Concomitant]
  5. TESSALON [Interacting]
     Indication: COUGH
     Dosage: 200 MG, 3X/DAY
     Route: 048
     Dates: start: 19961014, end: 19961021

REACTIONS (2)
  - ATRIAL FIBRILLATION [None]
  - DRUG INTERACTION [None]
